FAERS Safety Report 8744230 (Version 3)
Quarter: 2013Q4

REPORT INFORMATION
  Report Type: Spontaneous
  Country: US (occurrence: US)
  Receive Date: 20120824
  Receipt Date: 20131101
  Transmission Date: 20140711
  Serious: No
  Sender: FDA-Public Use
  Company Number: US-009507513-1208USA006789

PATIENT
  Age: 49 Year
  Sex: Male

DRUGS (3)
  1. PEGINTRON [Suspect]
     Dosage: 120 MICROGRAM, QW
     Route: 058
     Dates: start: 20120712
  2. RIBAPAK [Suspect]
  3. TELAPREVIR [Suspect]

REACTIONS (4)
  - Diarrhoea [Unknown]
  - Chills [Unknown]
  - Myalgia [Unknown]
  - Nausea [Unknown]
